FAERS Safety Report 8513054-8 (Version None)
Quarter: 2012Q3

REPORT INFORMATION
  Report Type: 
  Country: None (occurrence: None)
  Receive Date: 20120716
  Receipt Date: 20120119
  Transmission Date: 20120928
  Serious: Yes (Hospitalization)
  Sender: FDA-Public Use
  Company Number: DE-BAXTER-2012BH002641

PATIENT
  Age: 76 Year
  Sex: Female
  Weight: 85.6 kg

DRUGS (5)
  1. PHYSIOSOL IN PLASTIC CONTAINER [Suspect]
     Route: 033
     Dates: start: 20090323
  2. EXTRANEAL [Suspect]
     Route: 033
     Dates: start: 20090323
  3. INSULIN [Concomitant]
  4. IRON [Concomitant]
  5. PHYSIOSOL IN PLASTIC CONTAINER [Suspect]
     Route: 033
     Dates: start: 20090323

REACTIONS (2)
  - BRONCHITIS BACTERIAL [None]
  - CYSTITIS NONINFECTIVE [None]
